FAERS Safety Report 5611603-0 (Version None)
Quarter: 2008Q1

REPORT INFORMATION
  Report Type: 
  Country: None (occurrence: None)
  Receive Date: 20080201
  Receipt Date: 20080123
  Transmission Date: 20080703
  Serious: Yes (Other)
  Sender: FDA-Public Use
  Company Number: ES-PFIZER INC-2008007885

PATIENT
  Age: 69 Year
  Sex: Male

DRUGS (2)
  1. VIAGRA [Suspect]
     Dosage: TEXT:50 MG PRN
     Route: 048
  2. ANTIHYPERTENSIVES [Concomitant]

REACTIONS (2)
  - HEADACHE [None]
  - TINNITUS [None]
